FAERS Safety Report 6937456-6 (Version None)
Quarter: 2010Q3

REPORT INFORMATION
  Report Type: 
  Country: None (occurrence: None)
  Receive Date: 20100823
  Receipt Date: 20100811
  Transmission Date: 20110219
  Serious: Yes (Hospitalization)
  Sender: FDA-Public Use
  Company Number: JP-ROCHE-719558

PATIENT
  Sex: Female
  Weight: 54 kg

DRUGS (7)
  1. TOCILIZUMAB [Suspect]
     Indication: RHEUMATOID ARTHRITIS
     Dosage: ROUTE: SUBCUTANEOUS.  ACTION TAKEN: DISCONTINUED.
     Route: 058
     Dates: start: 20100720
  2. TOCILIZUMAB [Suspect]
     Dosage: ACTION TAKEN: DISCONTINUED.
     Route: 042
     Dates: start: 20100720
  3. CELECOXIB [Concomitant]
     Dosage: NOTE: SINGLE USE.
     Route: 048
     Dates: start: 20100120
  4. REBAMIPIDE [Concomitant]
     Dosage: NOTE: SINGLE USE.
     Route: 048
     Dates: start: 20100518
  5. DIOVAN [Concomitant]
     Route: 048
  6. CEPHADOL [Concomitant]
     Dosage: NOTE: SINGLE USE.
     Route: 048
     Dates: start: 20100617
  7. ADENOSINE TRIPHOSPHATE DISODIUM [Concomitant]
     Dosage: NOTE: SINGLE USE.  DRUG NAME: ADETPHOS, FORM: GRANULATED POWDER.
     Route: 048
     Dates: start: 20100617

REACTIONS (1)
  - MENIERE'S DISEASE [None]
